FAERS Safety Report 4621847-2 (Version None)
Quarter: 2005Q1

REPORT INFORMATION
  Report Type: 
  Country: None (occurrence: None)
  Receive Date: 20050329
  Receipt Date: 20040614
  Transmission Date: 20050727
  Serious: Yes (Hospitalization)
  Sender: FDA-Public Use
  Company Number: FR-MERCK-0406FRA00058

PATIENT
  Age: 75 Year
  Sex: Male

DRUGS (6)
  1. VIOXX [Suspect]
     Route: 048
     Dates: start: 20040212, end: 20040226
  2. TRIMETAZIDINE HYDROCHLORIDE [Suspect]
     Route: 048
  3. CLOPIDOGREL BISULFATE [Suspect]
     Indication: CORONARY ARTERY INSUFFICIENCY
     Route: 048
  4. SOTALOL HYDROCHLORIDE [Suspect]
     Indication: CORONARY ARTERY INSUFFICIENCY
     Route: 048
     Dates: end: 20040226
  5. GINKGO BILOBA EXTRACT [Suspect]
     Indication: VASCULAR INSUFFICIENCY
     Route: 048
  6. PRAVASTATIN SODIUM [Suspect]
     Indication: HYPERCHOLESTEROLAEMIA
     Route: 048

REACTIONS (3)
  - BLOOD CREATININE INCREASED [None]
  - BODY TEMPERATURE INCREASED [None]
  - DIARRHOEA [None]
